FAERS Safety Report 8544008-3 (Version None)
Quarter: 2012Q3

REPORT INFORMATION
  Report Type: 
  Country: None (occurrence: None)
  Receive Date: 20120727
  Receipt Date: 20120719
  Transmission Date: 20120928
  Serious: Yes (Disabling, Other)
  Sender: FDA-Public Use
  Company Number: US-PFIZER INC-2012174784

PATIENT
  Sex: Female
  Weight: 86.17 kg

DRUGS (9)
  1. ATORVASTATIN CALCIUM [Suspect]
     Indication: BLOOD CHOLESTEROL INCREASED
     Dosage: 40 MG, ONCE A DAY
     Route: 048
     Dates: start: 20120101
  2. OMEPRAZOLE [Concomitant]
     Dosage: 40 MG, DAILY
  3. INSULIN [Concomitant]
     Dosage: UNK
  4. NOVOLOG [Concomitant]
     Indication: TYPE 1 DIABETES MELLITUS
     Dosage: UNK, DAILY
  5. LIPITOR [Suspect]
     Indication: BLOOD CHOLESTEROL INCREASED
     Dosage: 40 MG, ONCE A DAY
     Route: 048
     Dates: end: 20120101
  6. DIAMOX [Concomitant]
     Indication: RENAL DISORDER
     Dosage: 125 MG, TWICE DAILY
  7. FLUOXETINE [Concomitant]
     Dosage: 40 MG, DAILY
  8. OMEPRAZOLE [Concomitant]
     Indication: GASTROOESOPHAGEAL REFLUX DISEASE
     Dosage: 20 MG, TWICE DAILY
  9. AMITRIPTYLINE [Concomitant]
     Dosage: UNK

REACTIONS (4)
  - THYROID DISORDER [None]
  - GASTROOESOPHAGEAL REFLUX DISEASE [None]
  - DYSPEPSIA [None]
  - GLYCOSYLATED HAEMOGLOBIN INCREASED [None]
